FAERS Safety Report 16393639 (Version 1)
Quarter: 2019Q3

REPORT INFORMATION
  Report Type: Spontaneous
  Country: US (occurrence: US)
  Receive Date: 20190603
  Receipt Date: 20190603
  Transmission Date: 20191004
  Serious: Yes (Other)
  Sender: FDA-Public Use
  Company Number: None

PATIENT
  Age: 63 Year
  Sex: Female
  Weight: 56.25 kg

DRUGS (2)
  1. DERMASIL DRYSKIN [Suspect]
     Active Substance: DIMETHICONE
     Indication: DRY SKIN
     Route: 061
     Dates: start: 20190525, end: 20190601
  2. BP MEDICATION [Concomitant]

REACTIONS (8)
  - Pruritus [None]
  - Blister [None]
  - Muscle spasms [None]
  - Skin fissures [None]
  - Swelling [None]
  - Dry skin [None]
  - Urticaria [None]
  - Erythema [None]

NARRATIVE: CASE EVENT DATE: 20190527
